FAERS Safety Report 9039013 (Version 1)
Quarter: 2013Q1

REPORT INFORMATION
  Report Type: Report from Study
  Country: US (occurrence: US)
  Receive Date: 20130129
  Receipt Date: 20130129
  Transmission Date: 20140127
  Serious: No
  Sender: FDA-Public Use
  Company Number: US-ABBOTT-12P-163-0931479-00

PATIENT
  Age: 31 Year
  Sex: Male

DRUGS (6)
  1. HUMIRA 40 MG/0.8 ML PEN [Suspect]
     Indication: RHEUMATOID ARTHRITIS
     Dates: start: 20120302
  2. METHOTREXATE [Suspect]
     Indication: PRODUCT USED FOR UNKNOWN INDICATION
     Dosage: 6 PILLS WEEKLY
  3. ASACOL [Concomitant]
     Indication: CROHN^S DISEASE
  4. VITAMIN B 12 [Concomitant]
     Indication: MEDICAL DIET
     Dosage: MONTHLY
  5. VITAMIN D [Concomitant]
     Indication: MEDICAL DIET
     Dosage: DAILY
  6. IRON [Concomitant]
     Indication: MEDICAL DIET
     Dosage: 325MG DAILY

REACTIONS (3)
  - Nausea [Recovered/Resolved]
  - Asthenia [Recovered/Resolved]
  - Fatigue [Recovered/Resolved]
